FAERS Safety Report 5609268-7 (Version None)
Quarter: 2008Q1

REPORT INFORMATION
  Report Type: 
  Country: None (occurrence: None)
  Receive Date: 20080129
  Receipt Date: 20080129
  Transmission Date: 20080703
  Serious: Yes (Other)
  Sender: FDA-Public Use
  Company Number: None

PATIENT
  Age: 52 Year
  Sex: Female
  Weight: 83.9154 kg

DRUGS (4)
  1. HUMIRA [Suspect]
     Indication: RHEUMATOID ARTHRITIS
     Dosage: 0.8 ML  SYRINGE   1 PER WEEK  ID  (DURATION: 2 TO 3 YEARS)
     Route: 026
  2. PREDNISONE TAB [Concomitant]
  3. SYNTHROID [Concomitant]
  4. ZOLOFT [Concomitant]

REACTIONS (1)
  - HYPOSMIA [None]
